FAERS Safety Report 11469024 (Version 1)
Quarter: 2015Q3

REPORT INFORMATION
  Report Type: Spontaneous
  Country: MY (occurrence: MY)
  Receive Date: 20150908
  Receipt Date: 20150908
  Transmission Date: 20151125
  Serious: No
  Sender: FDA-Public Use
  Company Number: MY-JNJFOC-20150821639

PATIENT
  Age: 25 Year
  Sex: Male

DRUGS (5)
  1. FENTANYL. [Suspect]
     Active Substance: FENTANYL
     Indication: PRODUCT USED FOR UNKNOWN INDICATION
     Route: 062
     Dates: start: 20150824, end: 20150824
  2. ALBUMIN [Concomitant]
     Active Substance: ALBUMIN (HUMAN)
     Route: 065
  3. CEFTRIAXONE. [Concomitant]
     Active Substance: CEFTRIAXONE
     Route: 065
  4. METHYLPREDNISOLONE. [Concomitant]
     Active Substance: METHYLPREDNISOLONE
     Indication: PRODUCT USED FOR UNKNOWN INDICATION
     Route: 065
  5. FENTANYL. [Suspect]
     Active Substance: FENTANYL
     Indication: PRODUCT USED FOR UNKNOWN INDICATION
     Route: 062
     Dates: start: 20150822, end: 20150824

REACTIONS (6)
  - Product adhesion issue [Unknown]
  - Drug administered at inappropriate site [Unknown]
  - Delusion [Recovered/Resolved]
  - Hallucination [Recovered/Resolved]
  - Insomnia [Recovered/Resolved]
  - Product quality issue [Unknown]
